FAERS Safety Report 11705333 (Version 1)
Quarter: 2015Q4

REPORT INFORMATION
  Report Type: Spontaneous
  Country: US (occurrence: US)
  Receive Date: 20151106
  Receipt Date: 20151106
  Transmission Date: 20160304
  Serious: Yes (Hospitalization, Other)
  Sender: FDA-Public Use
  Company Number: US-INDIVIOR-INDV-084941-2015

PATIENT
  Sex: Female

DRUGS (12)
  1. SUBOXONE [Suspect]
     Active Substance: BUPRENORPHINE HYDROCHLORIDE\NALOXONE HYDROCHLORIDE
     Indication: DRUG DEPENDENCE
     Dosage: UNK, DAILY
     Route: 064
     Dates: start: 20140409, end: 2014
  2. BUPRENORPHINE GENERIC TAB [Suspect]
     Active Substance: BUPRENORPHINE
     Indication: DRUG DEPENDENCE
     Dosage: 12MG, DAILY
     Route: 064
     Dates: start: 2014, end: 2014
  3. BUPRENORPHINE GENERIC TAB [Suspect]
     Active Substance: BUPRENORPHINE
     Dosage: 16MG, DAILY
     Route: 064
     Dates: start: 2014, end: 20141212
  4. SEROQUEL [Suspect]
     Active Substance: QUETIAPINE FUMARATE
     Indication: BIPOLAR DISORDER
     Dosage: UNK
     Route: 064
     Dates: start: 20140409, end: 20141212
  5. NICOTINE. [Suspect]
     Active Substance: NICOTINE
     Dosage: 0.5 PACKS PER DAY
     Route: 063
     Dates: start: 20141212, end: 2015
  6. INSULIN [Suspect]
     Active Substance: INSULIN NOS
     Dosage: UNK
     Route: 063
     Dates: start: 20141212, end: 2015
  7. SEROQUEL [Suspect]
     Active Substance: QUETIAPINE FUMARATE
     Dosage: UNK
     Route: 063
     Dates: start: 20141212, end: 2015
  8. BUPRENORPHINE GENERIC TAB [Suspect]
     Active Substance: BUPRENORPHINE
     Dosage: 16MG DAILY
     Route: 063
     Dates: start: 20141212, end: 2015
  9. AMBIEN [Suspect]
     Active Substance: ZOLPIDEM TARTRATE
     Dosage: UNK
     Route: 063
     Dates: start: 20141212, end: 2015
  10. INSULIN [Suspect]
     Active Substance: INSULIN NOS
     Indication: DIABETES MELLITUS
     Dosage: UNK
     Route: 064
     Dates: start: 20140409, end: 20141212
  11. AMBIEN [Suspect]
     Active Substance: ZOLPIDEM TARTRATE
     Indication: INSOMNIA
     Dosage: UNK
     Route: 064
     Dates: start: 20140409, end: 20141212
  12. NICOTINE. [Suspect]
     Active Substance: NICOTINE
     Indication: NICOTINE DEPENDENCE
     Dosage: 0.5 PACKS PER DAY
     Route: 064
     Dates: start: 20140409, end: 20141212

REACTIONS (9)
  - Exposure during breast feeding [Recovered/Resolved]
  - Drug withdrawal syndrome neonatal [Recovered/Resolved]
  - Premature baby [Recovered/Resolved]
  - Jaundice neonatal [Recovered/Resolved]
  - Infantile colic [Recovered/Resolved]
  - Low birth weight baby [Recovered/Resolved]
  - Neonatal disorder [Not Recovered/Not Resolved]
  - Gastrooesophageal reflux disease [Not Recovered/Not Resolved]
  - Foetal exposure during pregnancy [Recovered/Resolved]

NARRATIVE: CASE EVENT DATE: 20140409
